FAERS Safety Report 9213189 (Version 2)
Quarter: 2013Q2

REPORT INFORMATION
  Report Type: Spontaneous
  Country: RU (occurrence: RU)
  Receive Date: 20130405
  Receipt Date: 20130507
  Transmission Date: 20140414
  Serious: Yes (Hospitalization, Other)
  Sender: FDA-Public Use
  Company Number: RU-JNJFOC-20130318322

PATIENT
  Sex: Male
  Weight: 3 kg

DRUGS (5)
  1. DARUNAVIR [Suspect]
     Indication: FOETAL EXPOSURE DURING PREGNANCY
     Route: 064
     Dates: start: 20120406
  2. LAMIVUDINE [Suspect]
     Indication: FOETAL EXPOSURE DURING PREGNANCY
     Route: 064
     Dates: start: 20120312
  3. PHOSPHAZID [Suspect]
     Indication: FOETAL EXPOSURE DURING PREGNANCY
     Route: 064
     Dates: start: 20120312
  4. SAQUINAVIR [Suspect]
     Indication: FOETAL EXPOSURE DURING PREGNANCY
     Route: 064
     Dates: start: 20120312, end: 20120405
  5. RITONAVIR [Suspect]
     Indication: FOETAL EXPOSURE DURING PREGNANCY
     Route: 064
     Dates: start: 20120312

REACTIONS (4)
  - Central nervous system lesion [Unknown]
  - Foetal damage [Unknown]
  - Colitis ischaemic [Unknown]
  - Jaundice neonatal [Unknown]
